FAERS Safety Report 10040723 (Version 1)
Quarter: 2014Q1

REPORT INFORMATION
  Report Type: Report from Study
  Country: NL (occurrence: NL)
  Receive Date: 20140327
  Receipt Date: 20140327
  Transmission Date: 20141002
  Serious: Yes (Death, Hospitalization)
  Sender: FDA-Public Use
  Company Number: NL-JNJFOC-20140308924

PATIENT
  Age: 86 Year
  Sex: Male
  Weight: 85 kg

DRUGS (9)
  1. ABIRATERONE ACETATE [Suspect]
     Indication: PROSTATE CANCER
     Route: 048
     Dates: start: 20140108, end: 20140116
  2. ABIRATERONE ACETATE [Suspect]
     Indication: PROSTATE CANCER
     Route: 048
     Dates: start: 20131104, end: 20131204
  3. ALPRAZOLAM [Concomitant]
     Route: 065
  4. PREDNISOLON [Concomitant]
     Route: 065
  5. OMEPRAZOLE [Concomitant]
     Route: 065
  6. METOPROLOL [Concomitant]
     Route: 065
  7. INSULIN ASPART [Concomitant]
     Route: 065
  8. FUROSEMIDE [Concomitant]
     Route: 065
  9. ACENOCOUMAROL [Concomitant]
     Route: 065

REACTIONS (13)
  - Cardiac failure [Fatal]
  - Prostate cancer metastatic [Fatal]
  - Blood alkaline phosphatase increased [Unknown]
  - Hypoaesthesia [Unknown]
  - Speech disorder [Unknown]
  - Metabolic acidosis [Unknown]
  - Delirium [Unknown]
  - Haemoglobin decreased [Unknown]
  - Pleural effusion [Unknown]
  - Blood creatinine increased [Unknown]
  - Blood bilirubin increased [Unknown]
  - Atrial fibrillation [Unknown]
  - Aspartate aminotransferase increased [Unknown]
